FAERS Safety Report 6406730-4 (Version None)
Quarter: 2009Q4

REPORT INFORMATION
  Report Type: 
  Country: None (occurrence: None)
  Receive Date: 20091020
  Receipt Date: 20091008
  Transmission Date: 20100525
  Serious: Yes (Other)
  Sender: FDA-Public Use
  Company Number: GR-JNJFOC-20091003731

PATIENT
  Age: 67 Year
  Sex: Male

DRUGS (3)
  1. REMICADE [Suspect]
     Dosage: 2ND INFUSION
     Route: 042
     Dates: start: 20090912, end: 20090926
  2. REMICADE [Suspect]
     Indication: PSORIASIS
     Dosage: 1ST INFUSION
     Route: 042
     Dates: start: 20090912, end: 20090926
  3. XATRAL [Suspect]
     Indication: DRUG USE FOR UNKNOWN INDICATION

REACTIONS (3)
  - BLOOD PRESSURE FLUCTUATION [None]
  - RESPIRATORY TRACT INFECTION [None]
  - URINARY TRACT DISORDER [None]
